FAERS Safety Report 10201391 (Version 1)
Quarter: 2014Q2

REPORT INFORMATION
  Report Type: Spontaneous
  Country: CZ (occurrence: CZ)
  Receive Date: 20140528
  Receipt Date: 20140528
  Transmission Date: 20141212
  Serious: Yes (Disabling, Other)
  Sender: FDA-Public Use
  Company Number: CZ-ROCHE-1403901

PATIENT
  Age: 56 Year
  Sex: Male

DRUGS (1)
  1. AVASTIN [Suspect]
     Indication: OFF LABEL USE
     Route: 031
     Dates: start: 20110207, end: 20110207

REACTIONS (4)
  - Endophthalmitis [Recovered/Resolved with Sequelae]
  - Necrotising retinitis [Recovered/Resolved with Sequelae]
  - Blindness unilateral [Not Recovered/Not Resolved]
  - Off label use [Unknown]
